FAERS Safety Report 23044622 (Version 4)
Quarter: 2023Q4

REPORT INFORMATION
  Report Type: Report from Study
  Country: DE (occurrence: None)
  Receive Date: 20231009
  Receipt Date: 20231115
  Transmission Date: 20240109
  Serious: Yes (Hospitalization)
  Sender: FDA-Public Use
  Company Number: DE-ROCHE-3430978

PATIENT
  Age: 66 Year
  Sex: Male
  Weight: 86 kg

DRUGS (29)
  1. ATEZOLIZUMAB [Suspect]
     Active Substance: ATEZOLIZUMAB
     Indication: Malignant melanoma
     Dosage: ON 30/JUN/2023, 30/SEP/2023 MOST RECENT DOSE OF ATEZOLIZUMAB WAS RECEIVED PRIOR TO SAE AND AE. DOSE
     Route: 041
     Dates: start: 20170526
  2. VEMURAFENIB [Suspect]
     Active Substance: VEMURAFENIB
     Indication: Malignant melanoma
     Dosage: ON 26/SEP/2023, MOST RECENT DOSE OF VEMURAFENIB PRIOR TO AE AND SAE WAS 4 TABLET
     Route: 048
     Dates: start: 20170428
  3. COBIMETINIB [Suspect]
     Active Substance: COBIMETINIB
     Indication: Malignant melanoma
     Dosage: ON 26/SEP/2023, MOST RECENT DOSE OF COBIMETINIB PRIOR TO AE AND SAE WAS 60 MG.
     Route: 048
     Dates: start: 20170428
  4. CANDESARTAN [Concomitant]
     Active Substance: CANDESARTAN
     Indication: Hypertension
     Route: 048
     Dates: start: 20150801
  5. OMEPRAZOLE [Concomitant]
     Active Substance: OMEPRAZOLE
     Route: 048
     Dates: start: 20170616
  6. GENTAMICIN [Concomitant]
     Active Substance: GENTAMICIN
     Dates: start: 20170801
  7. MAGNESIUM [Concomitant]
     Active Substance: MAGNESIUM
     Indication: Muscle spasms
     Dates: start: 20170725
  8. CALCIUM CARBONATE\CHOLECALCIFEROL [Concomitant]
     Active Substance: CALCIUM CARBONATE\CHOLECALCIFEROL
     Dosage: 2 TABLETS
     Route: 048
     Dates: start: 20171110
  9. AMPHO-MORONAL [Concomitant]
     Active Substance: AMPHOTERICIN B
     Dates: start: 20181109
  10. SOLARAZE [Concomitant]
     Active Substance: DICLOFENAC SODIUM
     Indication: Actinic keratosis
     Dates: start: 20181123
  11. DEXAEDO [Concomitant]
     Dates: start: 20171110
  12. HYLO-GEL [Concomitant]
     Dates: start: 20171110
  13. HYLO-GEL [Concomitant]
     Dates: start: 20200123
  14. BETAGALEN [Concomitant]
     Dates: start: 20180509
  15. ARCOXIA [Concomitant]
     Active Substance: ETORICOXIB
     Route: 048
     Dates: start: 20190705
  16. PREDNISOLONE [Concomitant]
     Active Substance: PREDNISOLONE
     Indication: Cough
     Route: 048
     Dates: start: 20191114
  17. DICLOFENAC [Concomitant]
     Active Substance: DICLOFENAC
     Dates: start: 20191203
  18. POLIDOCANOL\UREA [Concomitant]
     Active Substance: POLIDOCANOL\UREA
     Dates: start: 20200103
  19. EUPHRASIA [Concomitant]
     Dates: start: 20200123
  20. PANTOPRAZOLE SODIUM [Concomitant]
     Active Substance: PANTOPRAZOLE SODIUM
     Route: 048
     Dates: start: 20200121
  21. ELIDEL [Concomitant]
     Active Substance: PIMECROLIMUS
     Route: 061
     Dates: start: 20181001
  22. METROCREME [Concomitant]
     Dates: start: 20220115
  23. KLISYRI [Concomitant]
     Active Substance: TIRBANIBULIN
     Route: 061
     Dates: start: 20220326
  24. AMBROXOL HYDROCHLORIDE [Concomitant]
     Active Substance: AMBROXOL HYDROCHLORIDE
     Route: 048
     Dates: start: 20230109
  25. AMBROXOL HYDROCHLORIDE [Concomitant]
     Active Substance: AMBROXOL HYDROCHLORIDE
     Route: 048
     Dates: start: 20230525
  26. FERROUS GLUCONATE [Concomitant]
     Active Substance: FERROUS GLUCONATE
     Route: 048
     Dates: start: 20221216
  27. FOSTER [Concomitant]
     Active Substance: BECLOMETHASONE\FORMOTEROL
     Route: 048
     Dates: start: 20230202
  28. IBUPROFEN [Concomitant]
     Active Substance: IBUPROFEN
     Indication: Headache
     Dates: start: 20180717
  29. IBUPROFEN [Concomitant]
     Active Substance: IBUPROFEN
     Indication: Arthralgia
     Dates: start: 20171103

REACTIONS (2)
  - Urosepsis [Recovered/Resolved]
  - Gastric ulcer [Recovered/Resolved with Sequelae]

NARRATIVE: CASE EVENT DATE: 20230926
